FAERS Safety Report 8037325-7 (Version None)
Quarter: 2012Q1

REPORT INFORMATION
  Report Type: 
  Country: None (occurrence: None)
  Receive Date: 20120111
  Receipt Date: 20120103
  Transmission Date: 20120608
  Serious: Yes (Hospitalization, Other)
  Sender: FDA-Public Use
  Company Number: US-MERCK-1108USA00638

PATIENT
  Age: 58 Year
  Sex: Female
  Weight: 64 kg

DRUGS (10)
  1. PLAQUENIL [Concomitant]
     Route: 065
  2. FOSAMAX [Suspect]
     Indication: OSTEOPOROSIS
     Route: 048
     Dates: start: 20010101, end: 20080718
  3. VITAMINS (UNSPECIFIED) [Concomitant]
     Route: 065
  4. METHOTREXATE [Concomitant]
     Route: 065
  5. VITAMIN B COMPLEX [Concomitant]
     Route: 065
  6. CALCIUM (UNSPECIFIED) [Concomitant]
     Route: 065
  7. VITAMIN D (UNSPECIFIED) [Concomitant]
     Route: 065
  8. OMEGA-3 MARINE TRIGLYCERIDES [Concomitant]
     Route: 065
  9. ENBREL [Concomitant]
     Route: 065
     Dates: start: 20010101
  10. ALENDRONATE SODIUM [Suspect]
     Indication: OSTEOPOROSIS
     Route: 048
     Dates: start: 20080717, end: 20090811

REACTIONS (46)
  - HYPOKALAEMIA [None]
  - BURSITIS [None]
  - MUSCULOSKELETAL DISORDER [None]
  - DRUG HYPERSENSITIVITY [None]
  - CALCULUS URETERIC [None]
  - HYDRONEPHROSIS [None]
  - HIATUS HERNIA [None]
  - IMPAIRED HEALING [None]
  - GASTROOESOPHAGEAL REFLUX DISEASE [None]
  - FIBROMYALGIA [None]
  - FEMUR FRACTURE [None]
  - DYSPNOEA [None]
  - HEPATIC STEATOSIS [None]
  - HYPERCHOLESTEROLAEMIA [None]
  - RENAL FAILURE CHRONIC [None]
  - ELECTROCARDIOGRAM ABNORMAL [None]
  - GALLBLADDER DISORDER [None]
  - ADVERSE EVENT [None]
  - URTICARIA [None]
  - TOOTH DISORDER [None]
  - MUSCLE SPASMS [None]
  - NAUSEA [None]
  - LIPIDS INCREASED [None]
  - HYDROURETER [None]
  - FALL [None]
  - POLYMYALGIA RHEUMATICA [None]
  - URETERIC OBSTRUCTION [None]
  - SWELLING [None]
  - FEBRILE NONHAEMOLYTIC TRANSFUSION REACTION [None]
  - SPINAL DISORDER [None]
  - BREAST CYST [None]
  - RHINITIS ALLERGIC [None]
  - OSTEOARTHRITIS [None]
  - POLYARTHRITIS [None]
  - HYPERSENSITIVITY [None]
  - SPINAL OSTEOARTHRITIS [None]
  - DIVERTICULUM [None]
  - HYPOCALCAEMIA [None]
  - ARTHROPATHY [None]
  - TACHYCARDIA [None]
  - RENAL CYST [None]
  - ANAEMIA POSTOPERATIVE [None]
  - ARTHRITIS [None]
  - BREAST MASS [None]
  - HEADACHE [None]
  - NEPHROLITHIASIS [None]
